FAERS Safety Report 16721320 (Version 2)
Quarter: 2019Q3

REPORT INFORMATION
  Report Type: Spontaneous
  Country: US (occurrence: US)
  Receive Date: 20190820
  Receipt Date: 20190821
  Transmission Date: 20191005
  Serious: Yes (Other)
  Sender: FDA-Public Use
  Company Number: US-ROCHE-2373238

PATIENT
  Age: 71 Year
  Sex: Male
  Weight: 78.54 kg

DRUGS (18)
  1. CYANOCOBALAMIN. [Concomitant]
     Active Substance: CYANOCOBALAMIN
  2. FERROUS SULFATE. [Concomitant]
     Active Substance: FERROUS SULFATE
  3. FERRLECIT [FERRIC SODIUM GLUCONATE COMPLEX] [Concomitant]
  4. CHOLECALCIFEROL [Concomitant]
     Active Substance: CHOLECALCIFEROL
  5. PRINZIDE [Concomitant]
     Active Substance: HYDROCHLOROTHIAZIDE\LISINOPRIL
  6. FOLINIC ACID [Concomitant]
     Active Substance: LEUCOVORIN
  7. OXALIPLATIN. [Concomitant]
     Active Substance: OXALIPLATIN
  8. NORVASC [Concomitant]
     Active Substance: AMLODIPINE BESYLATE
  9. ZOCOR [Concomitant]
     Active Substance: SIMVASTATIN
  10. AVASTIN [Suspect]
     Active Substance: BEVACIZUMAB
     Indication: SMALL INTESTINE ADENOCARCINOMA
     Route: 065
     Dates: start: 20190205
  11. EMLA [LIDOCAINE;PRILOCAINE] [Concomitant]
  12. ZOFRAN [Concomitant]
     Active Substance: ONDANSETRON HYDROCHLORIDE
  13. PROCHLORPERAZINE. [Concomitant]
     Active Substance: PROCHLORPERAZINE
  14. 5-FLUOROURACIL [FLUOROURACIL] [Concomitant]
     Active Substance: FLUOROURACIL
  15. ZESTORETIC [Concomitant]
     Active Substance: HYDROCHLOROTHIAZIDE\LISINOPRIL
  16. PROTONIX [Concomitant]
     Active Substance: PANTOPRAZOLE SODIUM
  17. NEULASTA [Suspect]
     Active Substance: PEGFILGRASTIM
     Indication: NEUTROPENIA
     Route: 065
     Dates: start: 20181221
  18. CLARITIN [Concomitant]
     Active Substance: LORATADINE

REACTIONS (4)
  - Hypertension [Unknown]
  - Bone pain [Unknown]
  - Skin hyperpigmentation [Unknown]
  - Neutropenia [Unknown]
